FAERS Safety Report 11751651 (Version 1)
Quarter: 2015Q4

REPORT INFORMATION
  Report Type: Spontaneous
  Country: US (occurrence: None)
  Receive Date: 20151117
  Receipt Date: 20151117
  Transmission Date: 20160304
  Serious: Yes (Death, Other)
  Sender: FDA-Public Use
  Company Number: 2015-US-000017

PATIENT
  Age: 19 Year
  Sex: Male

DRUGS (1)
  1. CHOLBAM [Suspect]
     Active Substance: CHOLIC ACID
     Indication: INBORN ERROR IN PRIMARY BILE ACID SYNTHESIS
     Dates: start: 20150430

REACTIONS (3)
  - Hepatic cancer [None]
  - Coma [None]
  - Hospice care [None]

NARRATIVE: CASE EVENT DATE: 2015
